FAERS Safety Report 14473347 (Version 1)
Quarter: 2018Q1

REPORT INFORMATION
  Report Type: Spontaneous
  Country: US (occurrence: US)
  Receive Date: 20180201
  Receipt Date: 20180201
  Transmission Date: 20180509
  Serious: No
  Sender: FDA-Public Use
  Company Number: US-AUROBINDO-AUR-APL-2017-39601

PATIENT
  Sex: Female
  Weight: 44.89 kg

DRUGS (8)
  1. DULOXETINE DELAYED-RELEASE CAPSULES USP 30 MG [Suspect]
     Active Substance: DULOXETINE
     Indication: NEURALGIA
     Dosage: 30 MG, ONCE A DAY
     Route: 048
     Dates: start: 201305, end: 201705
  2. DULOXETINE DELAYED-RELEASE CAPSULES USP 30 MG [Suspect]
     Active Substance: DULOXETINE
     Dosage: 20 MG, UNK
     Route: 048
     Dates: start: 20170714
  3. TOPAMAX [Concomitant]
     Active Substance: TOPIRAMATE
     Indication: PRODUCT USED FOR UNKNOWN INDICATION
  4. BOTOX [Concomitant]
     Active Substance: ONABOTULINUMTOXINA
     Indication: MUSCLE SPASTICITY
  5. DULOXETINE DELAYED-RELEASE CAPSULES USP 30 MG [Suspect]
     Active Substance: DULOXETINE
     Dosage: 60 MG, TWO TIMES A DAY
     Route: 048
     Dates: start: 201705
  6. BACLOFEN. [Concomitant]
     Active Substance: BACLOFEN
     Indication: PRODUCT USED FOR UNKNOWN INDICATION
  7. DULERA [Concomitant]
     Active Substance: FORMOTEROL FUMARATE DIHYDRATE\MOMETASONE FUROATE
     Indication: ASTHMA
  8. DULOXETINE DELAYED-RELEASE CAPSULES USP 30 MG [Suspect]
     Active Substance: DULOXETINE
     Dosage: 30 MG, UNK
     Route: 048
     Dates: start: 20170818

REACTIONS (3)
  - Peripheral swelling [Unknown]
  - Drug ineffective [Unknown]
  - Feeling abnormal [Unknown]
